FAERS Safety Report 17198549 (Version 1)
Quarter: 2019Q4

REPORT INFORMATION
  Report Type: Spontaneous
  Country: GB (occurrence: GB)
  Receive Date: 20191225
  Receipt Date: 20191225
  Transmission Date: 20200122
  Serious: Yes (Hospitalization)
  Sender: FDA-Public Use
  Company Number: GB-TEVA-2019-GB-1156195

PATIENT
  Age: 47 Year
  Sex: Male
  Weight: 84 kg

DRUGS (8)
  1. WARFARIN [Suspect]
     Active Substance: WARFARIN
     Dosage: THEN REVIEW
     Route: 048
     Dates: start: 20191114, end: 20191118
  2. INHIXA [Concomitant]
     Active Substance: ENOXAPARIN SODIUM
     Dosage: 1.5MG/KG, UNIT DOSE : 120  MILLIGRAM
  3. OSELTAMIVIR [Concomitant]
     Active Substance: OSELTAMIVIR
  4. SALBUTAMOL [Concomitant]
     Active Substance: ALBUTEROL
  5. CITALOPRAM [Concomitant]
     Active Substance: CITALOPRAM HYDROBROMIDE
  6. WARFARIN [Suspect]
     Active Substance: WARFARIN
     Indication: PULMONARY EMBOLISM
     Dosage: UNIT DOSE - 9 MILLIGRAM, LOADING DOSE
     Route: 048
     Dates: start: 20191112, end: 20191113
  7. TRAMADOL. [Concomitant]
     Active Substance: TRAMADOL
  8. TRELEGY ELLIPTA [Concomitant]
     Active Substance: FLUTICASONE FUROATE\UMECLIDINIUM BROMIDE\VILANTEROL TRIFENATATE

REACTIONS (4)
  - Swelling [Recovered/Resolved]
  - Peripheral swelling [Recovered/Resolved]
  - Penile necrosis [Recovered/Resolved]
  - Penile blister [Recovered/Resolved]

NARRATIVE: CASE EVENT DATE: 20191118
